FAERS Safety Report 5874467-6 (Version None)
Quarter: 2008Q3

REPORT INFORMATION
  Report Type: 
  Country: None (occurrence: None)
  Receive Date: 20080908
  Receipt Date: 20080829
  Transmission Date: 20090109
  Serious: Yes (Other)
  Sender: FDA-Public Use
  Company Number: US-PFIZER INC-2008072303

PATIENT
  Sex: Female

DRUGS (1)
  1. AMLODIPINE [Suspect]

REACTIONS (1)
  - PARKINSON'S DISEASE [None]
